FAERS Safety Report 4762788-X (Version None)
Quarter: 2005Q3

REPORT INFORMATION
  Report Type: 
  Country: None (occurrence: None)
  Receive Date: 20050907
  Receipt Date: 20050830
  Transmission Date: 20060218
  Serious: Yes (Hospitalization)
  Sender: FDA-Public Use
  Company Number: US-JNJFOC-20050900496

PATIENT
  Age: 35 Year
  Sex: Female
  Weight: 63.5 kg

DRUGS (11)
  1. DURAGESIC-100 [Suspect]
     Route: 062
  2. DURAGESIC-100 [Suspect]
     Route: 062
  3. CARISOPRODOL [Concomitant]
     Indication: MUSCLE SPASMS
  4. HYDROCODONE BITARTRATE [Concomitant]
     Indication: PAIN
     Dosage: 10MG/325MG, AS NECESSARY
  5. MOTRIN [Concomitant]
     Indication: PAIN
     Dosage: AS NECESSARY
  6. TYLENOL [Concomitant]
     Indication: PAIN
     Dosage: AS NECESSARY
  7. LEXAPRO [Concomitant]
     Indication: DEPRESSION
  8. PROTONIX [Concomitant]
  9. RELPAX [Concomitant]
     Indication: MIGRAINE
  10. PROMETHEGAN [Concomitant]
     Indication: NAUSEA
  11. TOPAMAX [Concomitant]
     Indication: MIGRAINE

REACTIONS (7)
  - APPLICATION SITE DERMATITIS [None]
  - APPLICATION SITE ERYTHEMA [None]
  - DEHYDRATION [None]
  - HEADACHE [None]
  - NAUSEA [None]
  - SCIATICA [None]
  - VOMITING [None]
